FAERS Safety Report 21967836 (Version 1)
Quarter: 2023Q1

REPORT INFORMATION
  Report Type: Spontaneous
  Country: US (occurrence: US)
  Receive Date: 20230208
  Receipt Date: 20230208
  Transmission Date: 20230418
  Serious: No
  Sender: FDA-Public Use
  Company Number: US-JNJFOC-20230201097

PATIENT
  Age: 50 Year
  Sex: Female
  Weight: 59 kg

DRUGS (9)
  1. TYLENOL [Suspect]
     Active Substance: ACETAMINOPHEN
     Indication: Infusion site pain
     Route: 065
  2. REMODULIN [Concomitant]
     Active Substance: TREPROSTINIL
     Indication: Pulmonary arterial hypertension
     Route: 058
  3. REMODULIN [Concomitant]
     Active Substance: TREPROSTINIL
     Dosage: CONCENTRATION 10.0 MG/ML
     Route: 058
     Dates: start: 20220408
  4. TRAMADOL HYDROCHLORIDE [Concomitant]
     Active Substance: TRAMADOL HYDROCHLORIDE
     Indication: Infusion site pain
     Route: 065
  5. GABAPENTIN [Concomitant]
     Active Substance: GABAPENTIN
     Indication: Infusion site pain
     Route: 065
  6. LECITHIN\POLOXAMER 407 [Concomitant]
     Active Substance: LECITHIN\POLOXAMER 407
     Indication: Infusion site pain
     Route: 065
  7. OPSUMIT [Concomitant]
     Active Substance: MACITENTAN
     Indication: Product used for unknown indication
     Route: 065
  8. TADALAFIL [Concomitant]
     Active Substance: TADALAFIL
     Indication: Product used for unknown indication
     Route: 065
  9. LIDOCAINE [Concomitant]
     Active Substance: LIDOCAINE
     Indication: Infusion site pain
     Route: 065

REACTIONS (2)
  - Constipation [Unknown]
  - Somnolence [Unknown]
